FAERS Safety Report 12552608 (Version 3)
Quarter: 2017Q2

REPORT INFORMATION
  Report Type: Spontaneous
  Country: US (occurrence: US)
  Receive Date: 20160713
  Receipt Date: 20170627
  Transmission Date: 20170830
  Serious: Yes (Hospitalization)
  Sender: FDA-Public Use
  Company Number: US-BAYER-2016-136331

PATIENT
  Age: 33 Year
  Sex: Female
  Weight: 77.98 kg

DRUGS (3)
  1. DIOVAN [VALSARTAN] [Concomitant]
     Indication: HYPERTENSION
     Dosage: UNK
     Dates: start: 2002
  2. MIRENA [Suspect]
     Active Substance: LEVONORGESTREL
     Indication: CONTRACEPTION
     Dosage: 20 MCG/24HR, CONT
     Route: 015
     Dates: start: 200901, end: 20120817
  3. AMLODIPIN [Concomitant]
     Active Substance: AMLODIPINE BESYLATE
     Indication: HYPERTENSION
     Dosage: UNK
     Dates: start: 2002

REACTIONS (8)
  - Musculoskeletal pain [None]
  - Headache [None]
  - Dizziness [None]
  - Back pain [None]
  - Idiopathic intracranial hypertension [None]
  - Device issue [None]
  - Nausea [None]
  - Neck pain [None]

NARRATIVE: CASE EVENT DATE: 201001
